FAERS Safety Report 9761108 (Version 3)
Quarter: 2013Q4

REPORT INFORMATION
  Report Type: Spontaneous
  Country: JP (occurrence: JP)
  Receive Date: 20131216
  Receipt Date: 20131227
  Transmission Date: 20140711
  Serious: Yes (Other)
  Sender: FDA-Public Use
  Company Number: JP-TEVA-446097ISR

PATIENT
  Age: 55 Year
  Sex: Female

DRUGS (2)
  1. CISPLATIN [Suspect]
     Indication: SMALL CELL CARCINOMA
     Dosage: 120 MILLIGRAM DAILY; 4 COURSES
  2. ETOPOSIDE [Suspect]
     Indication: SMALL CELL CARCINOMA
     Dosage: 150 MILLIGRAM DAILY; 4 COURSES

REACTIONS (3)
  - Bone marrow toxicity [Unknown]
  - Mucosal inflammation [Unknown]
  - Metastases to bone marrow [Unknown]
